FAERS Safety Report 6566608-2 (Version None)
Quarter: 2010Q1

REPORT INFORMATION
  Report Type: 
  Country: None (occurrence: None)
  Receive Date: 20100202
  Receipt Date: 20100129
  Transmission Date: 20100710
  Serious: Yes (Death, Hospitalization)
  Sender: FDA-Public Use
  Company Number: FI-ROCHE-673926

PATIENT
  Sex: Male

DRUGS (3)
  1. XELODA [Suspect]
     Dosage: FREQUENCY: TWICE DAILY FOR 14 DAYS + 7 DAY REST.
     Route: 048
     Dates: end: 20091209
  2. XELODA [Suspect]
     Dosage: FREQUENCY: 5+5 TABLETS = 6000 MG/DAY.
     Route: 048
  3. DOCETAXEL [Concomitant]

REACTIONS (2)
  - STEVENS-JOHNSON SYNDROME [None]
  - STOMATITIS [None]
